FAERS Safety Report 5600684-6 (Version None)
Quarter: 2008Q1

REPORT INFORMATION
  Report Type: 
  Country: None (occurrence: None)
  Receive Date: 20080123
  Receipt Date: 20080115
  Transmission Date: 20080703
  Serious: Yes (Hospitalization, Other)
  Sender: FDA-Public Use
  Company Number: FI-ABBOTT-07P-055-0431592-00

PATIENT
  Age: 4 Year
  Sex: Male
  Weight: 18 kg

DRUGS (3)
  1. SEVOFLURANE [Suspect]
     Indication: TONSILLECTOMY
     Route: 055
     Dates: start: 20071204, end: 20071204
  2. NITROUS OXIDE [Concomitant]
     Indication: TONSILLECTOMY
     Dates: start: 20071204, end: 20071204
  3. FENTANYL [Concomitant]
     Indication: TONSILLECTOMY
     Dates: start: 20071204, end: 20071204

REACTIONS (5)
  - CARBON DIOXIDE INCREASED [None]
  - ELECTROCARDIOGRAM ST SEGMENT DEPRESSION [None]
  - HEART SOUNDS ABNORMAL [None]
  - OVERDOSE [None]
  - PULSE ABSENT [None]
